FAERS Safety Report 9661270 (Version 2)
Quarter: 2013Q4

REPORT INFORMATION
  Report Type: Spontaneous
  Country: US (occurrence: US)
  Receive Date: 20131031
  Receipt Date: 20131031
  Transmission Date: 20140711
  Serious: Yes (Hospitalization, Other)
  Sender: FDA-Public Use
  Company Number: US-CELGENE-163-21880-13081620

PATIENT
  Age: 68 Year
  Sex: Female

DRUGS (17)
  1. REVLIMID [Suspect]
     Indication: PLASMA CELL MYELOMA
     Dosage: 25 MILLIGRAM
     Route: 048
     Dates: start: 20130730, end: 20130809
  2. DECADRON [Concomitant]
     Indication: PLASMA CELL MYELOMA
     Dosage: 40 MILLIGRAM
     Route: 065
     Dates: start: 20130730, end: 20130809
  3. FLEXERIL [Concomitant]
     Indication: PAIN
     Dosage: 30 MILLIGRAM
     Route: 065
     Dates: start: 20130705
  4. OXYCODONE HCL [Concomitant]
     Indication: PAIN
     Route: 065
     Dates: start: 20130709
  5. DILAUDID [Concomitant]
     Indication: PAIN
     Dosage: 8 MILLIGRAM
     Route: 065
     Dates: start: 20130807
  6. FENTANYL [Concomitant]
     Indication: PAIN
     Dosage: 8.3333 MICROGRAM
     Route: 065
     Dates: start: 20130807
  7. MIRALAX [Concomitant]
     Indication: PRODUCT USED FOR UNKNOWN INDICATION
     Route: 065
  8. LACTULOSE [Concomitant]
     Indication: PRODUCT USED FOR UNKNOWN INDICATION
     Dosage: 10GM/5ML
     Route: 065
  9. MYCELEX [Concomitant]
     Indication: PRODUCT USED FOR UNKNOWN INDICATION
     Dosage: 50 MILLIGRAM
     Route: 065
  10. ZOFRAN [Concomitant]
     Indication: PRODUCT USED FOR UNKNOWN INDICATION
     Dosage: 24 MILLIGRAM
     Route: 041
  11. ZOFRAN [Concomitant]
     Route: 041
  12. PACKD RED BLOOD CELLS [Concomitant]
     Indication: PRODUCT USED FOR UNKNOWN INDICATION
     Dosage: 2 UNITS
     Route: 065
  13. COLACE [Concomitant]
     Indication: CONSTIPATION
     Route: 065
  14. SENNA [Concomitant]
     Indication: CONSTIPATION
     Route: 065
  15. ASPIRIN [Concomitant]
     Indication: PRODUCT USED FOR UNKNOWN INDICATION
     Dosage: 325 MILLIGRAM
     Route: 048
  16. CLOTRIMAZOLE [Concomitant]
     Indication: PRODUCT USED FOR UNKNOWN INDICATION
     Route: 065
  17. AVELOX [Concomitant]
     Indication: PNEUMONIA
     Route: 041

REACTIONS (3)
  - Muscle spasms [Recovered/Resolved]
  - Back pain [Recovering/Resolving]
  - Pancytopenia [Recovered/Resolved]
